FAERS Safety Report 26094351 (Version 1)
Quarter: 2025Q4

REPORT INFORMATION
  Report Type: Spontaneous
  Country: CH (occurrence: CH)
  Receive Date: 20251126
  Receipt Date: 20251126
  Transmission Date: 20260118
  Serious: Yes (Other)
  Sender: MERCK SHARP & DOHME LLC
  Company Number: None

PATIENT
  Age: 72 Year
  Sex: Male
  Weight: 62 kg

DRUGS (2)
  1. KEYTRUDA [Suspect]
     Active Substance: PEMBROLIZUMAB
     Indication: Bladder cancer
     Dosage: TIME INTERVAL: CYCLICAL: 4 DOSES TOTAL.
     Route: 042
     Dates: start: 20250711, end: 20250912
  2. PADCEV [Suspect]
     Active Substance: ENFORTUMAB VEDOTIN-EJFV
     Indication: Bladder cancer
     Dosage: TIME INTERVAL: CYCLICAL: 7 DOSES TOTAL.
     Route: 042
     Dates: start: 20250711, end: 20250912

REACTIONS (1)
  - Hepatitis cholestatic [Recovering/Resolving]

NARRATIVE: CASE EVENT DATE: 20250829
